FAERS Safety Report 6671954-8 (Version None)
Quarter: 2010Q2

REPORT INFORMATION
  Report Type: 
  Country: None (occurrence: None)
  Receive Date: 20100407
  Receipt Date: 20100330
  Transmission Date: 20101027
  Serious: Yes (Other)
  Sender: FDA-Public Use
  Company Number: US-ABBOTT-10P-163-0635805-00

PATIENT
  Sex: Male
  Weight: 73.548 kg

DRUGS (1)
  1. HUMIRA [Suspect]
     Indication: CROHN'S DISEASE
     Route: 058
     Dates: start: 20091001, end: 20100329

REACTIONS (3)
  - FURUNCLE [None]
  - IMPAIRED HEALING [None]
  - SKIN LACERATION [None]
